FAERS Safety Report 7477747-6 (Version None)
Quarter: 2011Q2

REPORT INFORMATION
  Report Type: 
  Country: None (occurrence: None)
  Receive Date: 20110511
  Receipt Date: 20110511
  Transmission Date: 20111010
  Serious: Yes (Hospitalization)
  Sender: FDA-Public Use
  Company Number: None

PATIENT
  Sex: Female
  Weight: 114 kg

DRUGS (11)
  1. DIOVAN [Concomitant]
  2. LANTUS [Concomitant]
  3. ASPIRIN [Concomitant]
  4. OMEGA FISH OIL [Concomitant]
  5. LEVOTHYROXINE SODIUM [Concomitant]
  6. TAXOL [Suspect]
     Dosage: 200 MG
     Dates: end: 20110421
  7. GLUCOPHAGE [Concomitant]
  8. PRAVASTATIN SODIUM [Concomitant]
  9. PREVACID [Concomitant]
  10. JANUVIA [Concomitant]
  11. LEVBID [Concomitant]

REACTIONS (4)
  - NAUSEA [None]
  - SMALL INTESTINAL OBSTRUCTION [None]
  - ABDOMINAL PAIN [None]
  - VOMITING [None]
